FAERS Safety Report 20713361 (Version 3)
Quarter: 2022Q2

REPORT INFORMATION
  Report Type: Spontaneous
  Country: VN (occurrence: VN)
  Receive Date: 20220415
  Receipt Date: 20220516
  Transmission Date: 20220721
  Serious: Yes (Life-Threatening)
  Sender: FDA-Public Use
  Company Number: VN-SA-2022SA130640

PATIENT
  Age: 26 Year
  Sex: Male
  Weight: 67 kg

DRUGS (5)
  1. ELOXATIN [Suspect]
     Active Substance: OXALIPLATIN
     Indication: Chemotherapy
     Dosage: 200 MG
     Route: 041
     Dates: start: 20220408, end: 20220408
  2. SOLU-MEDROL [Concomitant]
     Active Substance: METHYLPREDNISOLONE SODIUM SUCCINATE
     Indication: Vomiting
     Dosage: 40 MG
     Dates: start: 20220408, end: 20220408
  3. PALONO BFS [Concomitant]
     Indication: Vomiting
     Dosage: 0.25 MG
     Dates: start: 20220408, end: 20220408
  4. BEVACIZUMAB [Concomitant]
     Active Substance: BEVACIZUMAB
     Indication: Chemotherapy
     Dosage: 400 MG
     Dates: start: 20220408, end: 20220408
  5. DEXTROSE [Concomitant]
     Active Substance: DEXTROSE
     Indication: Medication dilution
     Dosage: 500 ML
     Dates: start: 20220408, end: 20220408

REACTIONS (4)
  - Skin mass [Recovered/Resolved]
  - Conjunctival hyperaemia [Recovered/Resolved]
  - Pruritus [Recovered/Resolved]
  - Headache [Recovered/Resolved]

NARRATIVE: CASE EVENT DATE: 20220408
